FAERS Safety Report 4314829-1 (Version None)
Quarter: 2004Q1

REPORT INFORMATION
  Report Type: 
  Country: None (occurrence: None)
  Receive Date: 20040308
  Receipt Date: 20040226
  Transmission Date: 20041129
  Serious: Yes (Death, Hospitalization)
  Sender: FDA-Public Use
  Company Number: HQWYE429127FEB04

PATIENT
  Sex: Female

DRUGS (7)
  1. VANCOLED (VANCOMYCIN HYDROCHLORIDE, UNSPEC) [Suspect]
     Indication: NOSOCOMIAL INFECTION
  2. VANCOLED (VANCOMYCIN HYDROCHLORIDE, UNSPEC) [Suspect]
     Indication: STAPHYLOCOCCAL INFECTION
  3. TEICOPLANIN [Suspect]
     Indication: NOSOCOMIAL INFECTION
  4. TEICOPLANIN [Suspect]
     Indication: STAPHYLOCOCCAL INFECTION
  5. MEROPENEM [Concomitant]
  6. GENTAMICIN [Concomitant]
  7. RIFAMPICIN [Concomitant]

REACTIONS (4)
  - ENDOCARDITIS [None]
  - LUNG ABSCESS [None]
  - PATHOGEN RESISTANCE [None]
  - TRICUSPID VALVE DISEASE [None]
